FAERS Safety Report 9126838 (Version 1)
Quarter: 2013Q1

REPORT INFORMATION
  Report Type: Spontaneous
  Country: SE (occurrence: SE)
  Receive Date: 20130122
  Receipt Date: 20130122
  Transmission Date: 20140127
  Serious: Yes (Death)
  Sender: FDA-Public Use
  Company Number: SE-WATSON-2013-00111

PATIENT
  Age: 21 Year
  Sex: Male

DRUGS (1)
  1. MIXED AMPHETAMINES (AELLC) [Suspect]
     Indication: PRODUCT USED FOR UNKNOWN INDICATION
     Dosage: UNK
     Route: 065

REACTIONS (2)
  - Coronary artery thrombosis [Fatal]
  - Toxicity to various agents [None]
